FAERS Safety Report 22820176 (Version 2)
Quarter: 2024Q4

REPORT INFORMATION
  Report Type: Spontaneous
  Country: ES (occurrence: ES)
  Receive Date: 20230814
  Receipt Date: 20241104
  Transmission Date: 20250114
  Serious: Yes (Other)
  Sender: MYLAN
  Company Number: ES-PFIZER INC-202300252903

PATIENT
  Age: 60 Year
  Sex: Female

DRUGS (8)
  1. METHOTREXATE [Suspect]
     Active Substance: METHOTREXATE
     Indication: Acute promyelocytic leukaemia
     Dosage: 15 MG/M2/DAY, WEEKLY (CYCLIC)
     Route: 030
  2. MITOXANTRONE [Suspect]
     Active Substance: MITOXANTRONE HYDROCHLORIDE
     Indication: Acute promyelocytic leukaemia
     Dosage: 10 MG/M2/DAY X 5 DAYS(CYCLIC)
     Route: 065
  3. MERCAPTOPURINE [Suspect]
     Active Substance: MERCAPTOPURINE
     Indication: Acute promyelocytic leukaemia
     Dosage: 90 MG/M2/DAY (CYCLICAL)
     Route: 048
  4. TRETINOIN [Suspect]
     Active Substance: TRETINOIN
     Indication: Acute promyelocytic leukaemia
     Dosage: 45 MG/M2 EVERY 3 MONTHS(CYCLICAL), MAINTENANCE TREATMENT. 15-DAY COURSES EVERY 3 MONTHS
     Route: 048
  5. TRETINOIN [Suspect]
     Active Substance: TRETINOIN
     Dosage: 45 MG/M2 X 40 DAYS (CYCLICAL), INDUCTION TREATMENT
     Route: 048
  6. IDARUBICIN HYDROCHLORIDE [Suspect]
     Active Substance: IDARUBICIN HYDROCHLORIDE
     Indication: Acute promyelocytic leukaemia
     Dosage: 12 MG/M2/DAY X 4 DAYS (CYCLICAL)
     Route: 042
  7. IDARUBICIN HYDROCHLORIDE [Suspect]
     Active Substance: IDARUBICIN HYDROCHLORIDE
     Dosage: 12 MG/M2/DAY X 1 DAY (CYCLICAL), CONSOLIDATION TREATMENT
     Route: 065
  8. IDARUBICIN HYDROCHLORIDE [Suspect]
     Active Substance: IDARUBICIN HYDROCHLORIDE
     Dosage: 5 MG/M2/DAY X 4 DAYS  (CYCLICAL), CONSOLIDATION TREATMENT
     Route: 042

REACTIONS (2)
  - Myelodysplastic syndrome [Recovering/Resolving]
  - Second primary malignancy [Unknown]
